FAERS Safety Report 20744604 (Version 1)
Quarter: 2022Q2

REPORT INFORMATION
  Report Type: Report from Study
  Country: DE (occurrence: DE)
  Receive Date: 20220425
  Receipt Date: 20220425
  Transmission Date: 20220721
  Serious: Yes (Hospitalization)
  Sender: FDA-Public Use
  Company Number: DE-ABBVIE-22K-062-4369528-00

PATIENT
  Age: 65 Year
  Sex: Female

DRUGS (5)
  1. CARBIDOPA\LEVODOPA [Suspect]
     Active Substance: CARBIDOPA\LEVODOPA
     Indication: Parkinson^s disease
     Dosage: MD: 10.0 ML, CRD 5.5 ML/H, AFTERNOON DOSE 6.7ML, ED: 2.5ML
     Route: 050
     Dates: start: 20200724
  2. CARBIDOPA\LEVODOPA [Suspect]
     Active Substance: CARBIDOPA\LEVODOPA
     Dosage: MD: 10.0 ML, CRD 5.0 ML/H, AFTERNOON DOSE 6.7ML, ED: 2.5ML
     Route: 050
     Dates: start: 20220420, end: 202204
  3. CARBIDOPA\LEVODOPA [Suspect]
     Active Substance: CARBIDOPA\LEVODOPA
     Dosage: MD 10.0ML, CRD 4.5ML/H, AFTERNOON DOSE: 6.7ML, ED: 2.5ML
     Route: 050
  4. RIVOTRIL [Concomitant]
     Active Substance: CLONAZEPAM
     Indication: Product used for unknown indication
  5. VITAMIN B12 [Concomitant]
     Active Substance: CYANOCOBALAMIN
     Indication: Product used for unknown indication

REACTIONS (4)
  - Hospitalisation [Not Recovered/Not Resolved]
  - Pain [Recovering/Resolving]
  - Muscle spasms [Recovering/Resolving]
  - Restlessness [Recovering/Resolving]

NARRATIVE: CASE EVENT DATE: 20220421
